FAERS Safety Report 9904248 (Version 2)
Quarter: 2014Q1

REPORT INFORMATION
  Report Type: Spontaneous
  Country: FR (occurrence: FR)
  Receive Date: 20140218
  Receipt Date: 20140218
  Transmission Date: 20141002
  Serious: Yes (Other)
  Sender: FDA-Public Use
  Company Number: FR-ASTRAZENECA-2013SE71586

PATIENT
  Age: 508 Month
  Sex: Female
  Weight: 65 kg

DRUGS (5)
  1. XEROQUEL [Suspect]
     Indication: SCHIZOPHRENIA
     Route: 048
     Dates: start: 20130614
  2. LOXAPAC [Concomitant]
     Route: 048
     Dates: start: 20130416
  3. VALIUM [Concomitant]
     Dates: start: 20130330
  4. LEVOTHYROX [Concomitant]
     Dates: start: 20130330
  5. VALDOXAN [Concomitant]
     Dates: start: 20130619, end: 20131129

REACTIONS (3)
  - Breast discomfort [Unknown]
  - Galactorrhoea [Unknown]
  - Blood prolactin increased [Not Recovered/Not Resolved]
